FAERS Safety Report 7516367-1 (Version None)
Quarter: 2011Q2

REPORT INFORMATION
  Report Type: 
  Country: None (occurrence: None)
  Receive Date: 20110601
  Receipt Date: 20110518
  Transmission Date: 20111010
  Serious: Yes (Hospitalization)
  Sender: FDA-Public Use
  Company Number: CH-ELI_LILLY_AND_COMPANY-CH201105006893

PATIENT
  Age: 54 Year
  Sex: Male

DRUGS (9)
  1. ESCITALOPRAM [Concomitant]
     Dosage: 20 MG, QD
     Route: 048
     Dates: start: 20110117, end: 20110201
  2. HALDOL [Concomitant]
     Dosage: UNK
     Dates: start: 20110207, end: 20110211
  3. ZYPREXA [Suspect]
     Dosage: 20 MG, QD
     Route: 048
     Dates: start: 20110112
  4. ZYPREXA [Suspect]
     Dosage: 20 MG, QD
     Route: 048
     Dates: start: 20110101, end: 20110102
  5. ESCITALOPRAM [Concomitant]
     Dosage: 10 MG, QD
     Route: 048
     Dates: start: 20110103, end: 20110116
  6. RISPERDAL [Concomitant]
     Dosage: 4 MG, QD
     Route: 048
     Dates: start: 20110128, end: 20110210
  7. METFORMIN HCL [Concomitant]
     Dosage: 200 MG, QD
     Dates: start: 20110106, end: 20110125
  8. ZYPREXA [Suspect]
     Dosage: 10 MG, QD
     Route: 048
     Dates: start: 20110103, end: 20110111
  9. LORAZEPAM [Concomitant]
     Dosage: 2 MG, QD
     Dates: start: 20110103, end: 20110111

REACTIONS (1)
  - THROMBOCYTOPENIA [None]
